FAERS Safety Report 9662560 (Version 2)
Quarter: 2013Q4

REPORT INFORMATION
  Report Type: Spontaneous
  Country: US (occurrence: US)
  Receive Date: 20131031
  Receipt Date: 20131031
  Transmission Date: 20140711
  Serious: Yes (Hospitalization)
  Sender: FDA-Public Use
  Company Number: US-NAPPMUNDI-USA-2010-0047913

PATIENT
  Age: 50 Year
  Sex: Male

DRUGS (3)
  1. OXYCONTIN (NDA 22-272) [Suspect]
     Indication: PAIN
     Dosage: 40 MG, TID
     Dates: start: 201009
  2. OXYCONTIN (NDA 22-272) [Suspect]
     Indication: NEOPLASM MALIGNANT
  3. PERCOCET                           /00446701/ [Concomitant]
     Indication: PRODUCT USED FOR UNKNOWN INDICATION
     Dosage: UNK

REACTIONS (8)
  - Malaise [Recovered/Resolved]
  - Drug withdrawal syndrome [Unknown]
  - Medication residue present [Unknown]
  - Blood pressure increased [Recovered/Resolved]
  - Hyperhidrosis [Recovered/Resolved]
  - Urticaria [Recovered/Resolved]
  - Drug ineffective [Not Recovered/Not Resolved]
  - Headache [Recovered/Resolved]
